FAERS Safety Report 9494580 (Version 1)
Quarter: 2013Q3

REPORT INFORMATION
  Report Type: Spontaneous
  Country: US (occurrence: US)
  Receive Date: 20130903
  Receipt Date: 20130903
  Transmission Date: 20140515
  Serious: Yes (Other)
  Sender: FDA-Public Use
  Company Number: US-BAYER-2013-105593

PATIENT
  Sex: Female

DRUGS (1)
  1. BETASERON [Suspect]
     Indication: ANKLE FRACTURE
     Dosage: 0.3 MG, UNK
     Route: 058
     Dates: start: 201304

REACTIONS (2)
  - Ankle fracture [None]
  - Depression [None]
